FAERS Safety Report 8626468 (Version 4)
Quarter: 2012Q4

REPORT INFORMATION
  Report Type: 
  Country: US (occurrence: US)
  Receive Date: 20120620
  Receipt Date: 20120928
  Transmission Date: 20130627
  Serious: Yes (Death)
  Sender: FDA-Public Use
  Company Number: US-CELGENEUS-163-21880-12062455

PATIENT
  Age: 87 Year
  Sex: Female
  Weight: 61.2 kg

DRUGS (12)
  1. REVLIMID [Suspect]
     Indication: MULTIPLE MYELOMA
     Dosage: 10 Milligram
     Route: 048
     Dates: start: 201205, end: 2012
  2. HYDROCODONE [Concomitant]
     Indication: PAIN
     Dosage: 45 Milligram
     Route: 065
  3. POTASSIUM [Concomitant]
     Indication: DRUG USE FOR UNKNOWN INDICATION
     Dosage: 40 Milliequivalents
     Route: 065
  4. PLENDIL [Concomitant]
     Indication: DRUG USE FOR UNKNOWN INDICATION
     Dosage: 10 Milligram
     Route: 065
  5. MAXZIDE [Concomitant]
     Indication: DRUG USE FOR UNKNOWN INDICATION
     Dosage: 75 Milligram
     Route: 065
  6. ARICEPT [Concomitant]
     Indication: SENILE DEMENTIA
     Dosage: 10 Milligram
     Route: 065
  7. PLAVIX [Concomitant]
     Indication: DRUG USE FOR UNKNOWN INDICATION
     Dosage: 75 Milligram
     Route: 065
  8. GLIPIZIDE [Concomitant]
     Indication: DIABETES
     Dosage: 10mg a.m. and 5 mg p.m.
     Route: 065
  9. NAMENDA [Concomitant]
     Indication: SENILE DEMENTIA
     Dosage: 20 Milligram
     Route: 065
  10. LOSARTAN [Concomitant]
     Indication: DRUG USE FOR UNKNOWN INDICATION
     Dosage: 100 Milligram
     Route: 065
  11. MORPHINE SULFATE [Concomitant]
     Indication: DRUG USE FOR UNKNOWN INDICATION
     Dosage: 60 Milligram
     Route: 065
  12. MORPHINE SULFATE [Concomitant]
     Route: 065
     Dates: start: 20120605

REACTIONS (2)
  - Plasma cell myeloma [Fatal]
  - Sepsis [Fatal]
